FAERS Safety Report 9537393 (Version 3)
Quarter: 2013Q4

REPORT INFORMATION
  Report Type: Report from Study
  Country: AU (occurrence: AU)
  Receive Date: 20130919
  Receipt Date: 20131107
  Transmission Date: 20140711
  Serious: Yes (Hospitalization, Other)
  Sender: FDA-Public Use
  Company Number: PHHY2013AU101443

PATIENT
  Age: 63 Year
  Sex: Female

DRUGS (2)
  1. AFINITOR [Suspect]
     Indication: BREAST CANCER METASTATIC
     Dosage: 10 MG, DAILY
     Route: 048
     Dates: start: 20130817, end: 201309
  2. AFINITOR [Suspect]
     Dosage: 5 MG, DAILY
     Route: 048
     Dates: start: 20130914

REACTIONS (3)
  - Bone marrow failure [Recovering/Resolving]
  - Pancytopenia [Recovered/Resolved]
  - Escherichia sepsis [Recovered/Resolved]
